FAERS Safety Report 4541175-3 (Version None)
Quarter: 2004Q4

REPORT INFORMATION
  Report Type: 
  Country: None (occurrence: None)
  Receive Date: 20041227
  Receipt Date: 20041210
  Transmission Date: 20050328
  Serious: Yes (Other)
  Sender: FDA-Public Use
  Company Number: 2004-DE-06179GD(0)

PATIENT
  Sex: Male

DRUGS (5)
  1. NEVIRAPINE (NEVIRAPINE) [Suspect]
     Indication: HIV INFECTION
  2. ABACAVIR (ABACAVIR) [Suspect]
     Indication: HIV INFECTION
  3. STAVUDINE [Suspect]
     Indication: HIV INFECTION
  4. CIPROFLOXACIN [Concomitant]
  5. DOXYCYCLINE [Concomitant]

REACTIONS (3)
  - DRUG INEFFECTIVE [None]
  - PATHOGEN RESISTANCE [None]
  - URETHRITIS GONOCOCCAL [None]
